FAERS Safety Report 6862194-8 (Version None)
Quarter: 2010Q3

REPORT INFORMATION
  Report Type: 
  Country: None (occurrence: None)
  Receive Date: 20100719
  Receipt Date: 20100708
  Transmission Date: 20110219
  Serious: Yes (Hospitalization, Other)
  Sender: FDA-Public Use
  Company Number: 2010US002685

PATIENT
  Age: 42 Year
  Sex: Male
  Weight: 49 kg

DRUGS (7)
  1. PROGRAF [Suspect]
     Indication: RENAL TRANSPLANT
     Dosage: 3 MG, UID/QD, ORAL
     Route: 048
  2. CELLCEPT [Concomitant]
  3. PREDNISONE [Concomitant]
  4. LYRICA [Concomitant]
  5. PRILOSEC (OMEPRAZOLE) [Concomitant]
  6. ATIVIAN (LORAZEPAM) [Concomitant]
  7. HUMALOG [Concomitant]

REACTIONS (3)
  - DIABETES MELLITUS INADEQUATE CONTROL [None]
  - INFECTION [None]
  - LEG AMPUTATION [None]
